FAERS Safety Report 6860812-1 (Version None)
Quarter: 2010Q3

REPORT INFORMATION
  Report Type: 
  Country: None (occurrence: None)
  Receive Date: 20100720
  Receipt Date: 20100710
  Transmission Date: 20110219
  Serious: Yes (Death, Other)
  Sender: FDA-Public Use
  Company Number: DE-MERCK-1007DEU00075

PATIENT
  Age: 23 Year
  Sex: Female

DRUGS (9)
  1. CANCIDAS [Suspect]
     Indication: ASPERGILLUS TEST POSITIVE
     Route: 065
  2. CANCIDAS [Suspect]
     Indication: LUNG INFILTRATION
     Route: 065
  3. METHYLPREDNISOLONE [Concomitant]
     Indication: IMMUNOSUPPRESSION
     Route: 065
  4. CYCLOSPORINE [Concomitant]
     Indication: IMMUNOSUPPRESSION
     Route: 065
  5. VORICONAZOLE [Suspect]
     Indication: PNEUMONIA
     Route: 065
  6. IMIPENEM [Concomitant]
     Indication: PNEUMONIA
     Route: 065
  7. TEICOPLANIN [Concomitant]
     Indication: PNEUMONIA
     Route: 065
  8. CIDOFOVIR [Concomitant]
     Indication: ADENOVIRUS INFECTION
     Route: 065
  9. MYCOPHENOLATE MOFETIL [Concomitant]
     Indication: IMMUNOSUPPRESSION
     Route: 065

REACTIONS (11)
  - ACUTE GRAFT VERSUS HOST DISEASE IN SKIN [None]
  - ADENOVIRUS INFECTION [None]
  - ANURIA [None]
  - BLOOD LACTATE DEHYDROGENASE INCREASED [None]
  - CIRCULATORY COLLAPSE [None]
  - MULTI-ORGAN FAILURE [None]
  - PYREXIA [None]
  - RENAL HYPERTROPHY [None]
  - RESPIRATORY FAILURE [None]
  - SEPSIS [None]
  - ZYGOMYCOSIS [None]
